FAERS Safety Report 20120744 (Version 1)
Quarter: 2021Q4

REPORT INFORMATION
  Report Type: Spontaneous
  Country: US (occurrence: None)
  Receive Date: 20211126
  Receipt Date: 20211126
  Transmission Date: 20220303
  Serious: Yes (Other)
  Sender: FDA-Public Use
  Company Number: None

PATIENT
  Age: 30 Year
  Sex: Female
  Weight: 51.75 kg

DRUGS (11)
  1. SECRET ANTIPERSPIRANT POWDER FRESH [Suspect]
     Active Substance: ALUMINUM CHLOROHYDRATE
  2. ZOLOFT [Concomitant]
     Active Substance: SERTRALINE HYDROCHLORIDE
  3. PROPRANOLOL [Concomitant]
     Active Substance: PROPRANOLOL HYDROCHLORIDE
  4. Etodalc [Concomitant]
  5. Mexatone [Concomitant]
  6. SYNTHROID [Concomitant]
     Active Substance: LEVOTHYROXINE SODIUM
  7. XANAX [Concomitant]
     Active Substance: ALPRAZOLAM
  8. NALTREXONE [Concomitant]
     Active Substance: NALTREXONE
  9. VITAMIN D NOS [Concomitant]
     Active Substance: VITAMIN D NOS
  10. IRON [Concomitant]
     Active Substance: IRON
  11. DIETARY SUPPLEMENT [Concomitant]
     Active Substance: DIETARY SUPPLEMENT

REACTIONS (1)
  - Anaemia [None]

NARRATIVE: CASE EVENT DATE: 20210616
